FAERS Safety Report 24682065 (Version 9)
Quarter: 2025Q2

REPORT INFORMATION
  Report Type: Report from Study
  Country: US (occurrence: US)
  Receive Date: 20241130
  Receipt Date: 20250515
  Transmission Date: 20250717
  Serious: Yes (Hospitalization, Other)
  Sender: ACCORD
  Company Number: US-SUMITOMO PHARMA SWITZERLAND GMBH-2024SPA002680

PATIENT
  Age: 74 Year
  Sex: Male

DRUGS (6)
  1. LEVOTHYROXINE [Suspect]
     Active Substance: LEVOTHYROXINE
     Indication: Product used for unknown indication
  2. ROSUVASTATIN CALCIUM [Suspect]
     Active Substance: ROSUVASTATIN CALCIUM
     Indication: Product used for unknown indication
  3. RELUGOLIX [Suspect]
     Active Substance: RELUGOLIX
     Indication: Prostate cancer
     Dosage: 360 MG, SINGLE
     Route: 048
     Dates: start: 20240417, end: 20240417
  4. APALUTAMIDE [Concomitant]
     Active Substance: APALUTAMIDE
     Indication: Prostate cancer
     Dosage: 120 MG, QD
     Dates: start: 20240418
  5. DAROLUTAMIDE [Concomitant]
     Active Substance: DAROLUTAMIDE
     Indication: Prostate cancer
     Dosage: 600 MG, BID
     Dates: start: 20250322
  6. RELUGOLIX [Suspect]
     Active Substance: RELUGOLIX
     Indication: Prostate cancer
     Dosage: 120 MG, QD
     Route: 048
     Dates: start: 20240418

REACTIONS (17)
  - Sepsis [Recovering/Resolving]
  - Cough [Unknown]
  - Blindness transient [Unknown]
  - Somnolence [Unknown]
  - Memory impairment [Unknown]
  - Gait disturbance [Unknown]
  - Hypoacusis [Unknown]
  - Illness [Unknown]
  - Seasonal allergy [Unknown]
  - Urinary tract infection [Unknown]
  - Haemorrhage [Unknown]
  - Rash [Unknown]
  - Asthenia [Unknown]
  - Back pain [Unknown]
  - Anaemia [Unknown]
  - Weight increased [Unknown]
  - Incorrect dose administered [Unknown]

NARRATIVE: CASE EVENT DATE: 20240506
